FAERS Safety Report 25312966 (Version 5)
Quarter: 2025Q4

REPORT INFORMATION
  Report Type: Spontaneous
  Country: US (occurrence: US)
  Receive Date: 20250514
  Receipt Date: 20251015
  Transmission Date: 20260117
  Serious: Yes (Hospitalization, Other)
  Sender: SANOFI AVENTIS
  Company Number: US-SA-2025SA135299

PATIENT
  Age: 64 Year
  Sex: Female

DRUGS (8)
  1. DUPIXENT [Suspect]
     Active Substance: DUPILUMAB
     Indication: Psoriatic arthropathy
     Dosage: 300 MG, QOW
     Route: 058
     Dates: start: 202410, end: 2025
  2. DUPIXENT [Suspect]
     Active Substance: DUPILUMAB
     Indication: Neurodermatitis
     Dosage: 300 MG, QOW
     Route: 058
     Dates: start: 202507
  3. TRIAMCINOLONE ACETONIDE [Concomitant]
     Active Substance: TRIAMCINOLONE ACETONIDE
     Route: 061
  4. OXYCODONE [Concomitant]
     Active Substance: OXYCODONE
  5. XANAX [Concomitant]
     Active Substance: ALPRAZOLAM
  6. BACTRIM DS [Concomitant]
     Active Substance: SULFAMETHOXAZOLE\TRIMETHOPRIM
  7. DUOBRII [Concomitant]
     Active Substance: HALOBETASOL PROPIONATE\TAZAROTENE
  8. ASPIRIN [Concomitant]
     Active Substance: ASPIRIN

REACTIONS (10)
  - Localised infection [Unknown]
  - Swelling [Not Recovered/Not Resolved]
  - Psoriatic arthropathy [Not Recovered/Not Resolved]
  - Hospitalisation [Unknown]
  - Swelling face [Not Recovered/Not Resolved]
  - Skin irritation [Unknown]
  - Alopecia [Recovering/Resolving]
  - Eczema [Recovering/Resolving]
  - Neurodermatitis [Unknown]
  - Product use in unapproved indication [Unknown]

NARRATIVE: CASE EVENT DATE: 20241001
